FAERS Safety Report 9409023 (Version 2)
Quarter: 2013Q3

REPORT INFORMATION
  Report Type: Spontaneous
  Country: US (occurrence: US)
  Receive Date: 20130719
  Receipt Date: 20130902
  Transmission Date: 20140515
  Serious: Yes (Hospitalization)
  Sender: FDA-Public Use
  Company Number: US-BIOGENIDEC-2013BI062659

PATIENT
  Age: 56 Year
  Sex: Female

DRUGS (2)
  1. AVONEX [Suspect]
     Indication: MULTIPLE SCLEROSIS
     Route: 030
     Dates: start: 20121012, end: 20121107
  2. AVONEX [Suspect]
     Indication: MULTIPLE SCLEROSIS
     Route: 030
     Dates: start: 20121108

REACTIONS (12)
  - Dehydration [Recovered/Resolved]
  - Heart rate decreased [Unknown]
  - Hypertension [Recovered/Resolved]
  - Blood pressure increased [Recovered/Resolved]
  - Vision blurred [Recovered/Resolved]
  - Dizziness [Unknown]
  - Asthenia [Recovered/Resolved]
  - Fatigue [Unknown]
  - Hyperhidrosis [Recovered/Resolved]
  - Multiple sclerosis relapse [Recovered/Resolved]
  - Influenza like illness [Not Recovered/Not Resolved]
  - Pain [Not Recovered/Not Resolved]
